FAERS Safety Report 14368693 (Version 1)
Quarter: 2018Q1

REPORT INFORMATION
  Report Type: Spontaneous
  Country: US (occurrence: US)
  Receive Date: 20180109
  Receipt Date: 20180109
  Transmission Date: 20180509
  Serious: No
  Sender: FDA-Public Use
  Company Number: US-PFIZER INC-2017540724

PATIENT
  Age: 68 Year
  Sex: Male
  Weight: 95 kg

DRUGS (6)
  1. SERTRALINE [Concomitant]
     Active Substance: SERTRALINE HYDROCHLORIDE
     Indication: CEREBROVASCULAR ACCIDENT
     Dosage: 100 MG, DAILY
     Dates: start: 2001
  2. LOVENOX [Concomitant]
     Active Substance: ENOXAPARIN SODIUM
     Indication: ANTICOAGULANT THERAPY
     Dosage: 150 MG, DAILY
     Dates: start: 201606
  3. ATORVASTATIN CALCIUM. [Concomitant]
     Active Substance: ATORVASTATIN CALCIUM
     Indication: BLOOD CHOLESTEROL ABNORMAL
     Dosage: 20 MG, DAILY
  4. ATROPINE SULFATE/DIPHENOXYLATE HYDROCHLORIDE [Suspect]
     Active Substance: ATROPINE SULFATE\DIPHENOXYLATE HYDROCHLORIDE
     Indication: DIARRHOEA
     Dosage: 2 DF, 4X/DAY (ATROPINE SULFATE 0.025 MG/DIPHENOXYLATE HCL 2.5 MG TABLET, 2 TABLETS EVERY 6 HOURS)
     Route: 048
     Dates: start: 20170721, end: 20170724
  5. DIGOXIN. [Concomitant]
     Active Substance: DIGOXIN
     Indication: HEART RATE ABNORMAL
     Dosage: 0.125 MG, DAILY
  6. IMMODIN [Concomitant]
     Indication: DIARRHOEA
     Dosage: 2 MG, AS NEEDED
     Dates: start: 2016

REACTIONS (7)
  - Repetitive speech [Recovered/Resolved]
  - Anxiety [Recovering/Resolving]
  - Product use issue [Unknown]
  - Logorrhoea [Recovered/Resolved]
  - Feeling abnormal [Recovered/Resolved]
  - Feeling jittery [Not Recovered/Not Resolved]
  - Insomnia [Not Recovered/Not Resolved]

NARRATIVE: CASE EVENT DATE: 20170723
